FAERS Safety Report 21160676 (Version 1)
Quarter: 2022Q3

REPORT INFORMATION
  Report Type: Report from Study
  Country: CA (occurrence: CA)
  Receive Date: 20220802
  Receipt Date: 20220802
  Transmission Date: 20221027
  Serious: Yes (Hospitalization, Other)
  Sender: FDA-Public Use
  Company Number: None

PATIENT
  Age: 66 Year
  Sex: Female
  Weight: 105 kg

DRUGS (13)
  1. METHOTREXATE [Interacting]
     Active Substance: METHOTREXATE
     Indication: Rheumatoid arthritis
     Route: 065
  2. DEXAMETHASONE [Interacting]
     Active Substance: DEXAMETHASONE
     Indication: Immune thrombocytopenia
     Route: 065
  3. PREDNISONE [Interacting]
     Active Substance: PREDNISONE
     Indication: Immune thrombocytopenia
     Route: 065
  4. ELTROMBOPAG [Interacting]
     Active Substance: ELTROMBOPAG
     Indication: Immune thrombocytopenia
     Route: 048
  5. RITUXIMAB [Interacting]
     Active Substance: RITUXIMAB
     Indication: Immune thrombocytopenia
     Route: 065
  6. ELTROMBOPAG [Interacting]
     Active Substance: ELTROMBOPAG
     Indication: Immune thrombocytopenia
     Dosage: 1 EVERY 1 DAYS
     Route: 048
  7. ELTROMBOPAG [Interacting]
     Active Substance: ELTROMBOPAG
     Indication: Immune thrombocytopenia
     Dosage: 365.
     Route: 048
  8. ELTROMBOPAG [Interacting]
     Active Substance: ELTROMBOPAG
     Indication: Immune thrombocytopenia
     Route: 048
  9. ELTROMBOPAG [Interacting]
     Active Substance: ELTROMBOPAG
     Indication: Immune thrombocytopenia
     Dosage: 1 EVERY 1 DAYS
     Route: 048
  10. ELTROMBOPAG [Interacting]
     Active Substance: ELTROMBOPAG
     Indication: Immune thrombocytopenia
     Dosage: 1 EVERY 2 WEEKS
     Route: 048
  11. ELTROMBOPAG [Interacting]
     Active Substance: ELTROMBOPAG
     Indication: Immune thrombocytopenia
     Dosage: 1 EVERY 1 WEEKS
     Route: 048
  12. ELTROMBOPAG [Interacting]
     Active Substance: ELTROMBOPAG
     Indication: Immune thrombocytopenia
     Route: 048
  13. ELTROMBOPAG [Interacting]
     Active Substance: ELTROMBOPAG
     Indication: Immune thrombocytopenia
     Route: 048

REACTIONS (8)
  - Drug ineffective [Unknown]
  - Drug interaction [Unknown]
  - Fatigue [Unknown]
  - Platelet count decreased [Unknown]
  - Platelet count increased [Unknown]
  - Product prescribing error [Unknown]
  - SARS-CoV-2 test positive [Unknown]
  - Wrong technique in product usage process [Unknown]
